FAERS Safety Report 16740463 (Version 2)
Quarter: 2019Q3

REPORT INFORMATION
  Report Type: Spontaneous
  Country: JP (occurrence: JP)
  Receive Date: 20190826
  Receipt Date: 20190910
  Transmission Date: 20191005
  Serious: Yes (Other)
  Sender: FDA-Public Use
  Company Number: JP-009507513-1908JPN001960J

PATIENT
  Age: 47 Year
  Sex: Female

DRUGS (7)
  1. KEYTRUDA [Suspect]
     Active Substance: PEMBROLIZUMAB
     Dosage: 200 MILLIGRAM, Q3W
     Route: 041
     Dates: start: 2019
  2. CARBOPLATIN. [Suspect]
     Active Substance: CARBOPLATIN
     Indication: NON-SMALL CELL LUNG CANCER
     Dosage: AUC6, Q3W
     Route: 042
     Dates: start: 20190702, end: 20190702
  3. PEMETREXED DISODIUM [Concomitant]
     Active Substance: PEMETREXED DISODIUM
     Indication: NON-SMALL CELL LUNG CANCER
     Dosage: 500 MILLIGRAM/SQ. METER, Q3W
     Route: 042
     Dates: start: 20190702, end: 20190702
  4. CARBOPLATIN. [Suspect]
     Active Substance: CARBOPLATIN
     Dosage: AUC6, Q3W
     Route: 042
     Dates: start: 2019, end: 2019
  5. CARBOPLATIN. [Suspect]
     Active Substance: CARBOPLATIN
     Dosage: AUC6(REDUCED TO 80%), Q3W
     Route: 042
     Dates: start: 201908
  6. KEYTRUDA [Suspect]
     Active Substance: PEMBROLIZUMAB
     Indication: NON-SMALL CELL LUNG CANCER
     Dosage: 200 MILLIGRAM, Q3W
     Route: 041
     Dates: start: 20190702, end: 20190702
  7. PEMETREXED DISODIUM [Concomitant]
     Active Substance: PEMETREXED DISODIUM
     Dosage: 400 MILLIGRAM/SQ. METER, Q3W
     Route: 042
     Dates: start: 2019

REACTIONS (1)
  - Bone marrow failure [Not Recovered/Not Resolved]

NARRATIVE: CASE EVENT DATE: 201907
